FAERS Safety Report 4590138-0 (Version None)
Quarter: 2005Q1

REPORT INFORMATION
  Report Type: 
  Country: None (occurrence: None)
  Receive Date: 20050217
  Receipt Date: 20050204
  Transmission Date: 20050727
  Serious: Yes (Death)
  Sender: FDA-Public Use
  Company Number: 2005026441

PATIENT
  Age: 68 Year
  Sex: Male

DRUGS (7)
  1. DOXAZOSIN MESYLATE [Suspect]
     Indication: HYPERTENSION
     Dosage: 8 MG, ORAL
     Route: 048
     Dates: start: 20050114
  2. MINIPRESS [Suspect]
     Indication: HYPERTENSION
     Dosage: 9 MG, ORAL
     Route: 048
     Dates: start: 20050114, end: 20050127
  3. BENIDIPINE HYDROCHLORIDE                (BENIDIPINE HYDROCHLORIDE) [Concomitant]
  4. METOPROLOL TARTRATE [Concomitant]
  5. NIFEDIPINE [Concomitant]
  6. VALSARTAN            (VALSARTAN) [Concomitant]
  7. TELMISARTAN                (TELMISARTAN) [Concomitant]

REACTIONS (10)
  - ALANINE AMINOTRANSFERASE INCREASED [None]
  - ASPARTATE AMINOTRANSFERASE INCREASED [None]
  - BLOOD PRESSURE SYSTOLIC INCREASED [None]
  - DISSEMINATED INTRAVASCULAR COAGULATION [None]
  - DRUG HYPERSENSITIVITY [None]
  - GALLBLADDER DISORDER [None]
  - HEPATIC ARTERY OCCLUSION [None]
  - HEPATIC FUNCTION ABNORMAL [None]
  - PRURITUS [None]
  - PYREXIA [None]
